FAERS Safety Report 23395254 (Version 2)
Quarter: 2024Q1

REPORT INFORMATION
  Report Type: Other
  Country: US (occurrence: None)
  Receive Date: 20240112
  Receipt Date: 20240122
  Transmission Date: 20240410
  Serious: Yes (Hospitalization)
  Sender: FDA-Public Use
  Company Number: US-ROCHE-3389745

PATIENT
  Age: 70 Year
  Sex: Male
  Weight: 115.77 kg

DRUGS (3)
  1. OCREVUS [Suspect]
     Active Substance: OCRELIZUMAB
     Indication: Primary progressive multiple sclerosis
     Dosage: DATE OF TREATMENT 23/JUN/2023, 09/JUN/2023
     Route: 042
     Dates: start: 202306
  2. ERGOCALCIFEROL [Concomitant]
     Active Substance: ERGOCALCIFEROL
     Indication: Multiple sclerosis
  3. VITAMIN B [Concomitant]
     Active Substance: VITAMIN B
     Indication: Multiple sclerosis

REACTIONS (2)
  - Diarrhoea [Recovered/Resolved]
  - Urinary tract infection [Recovered/Resolved]

NARRATIVE: CASE EVENT DATE: 20230601
